FAERS Safety Report 20501297 (Version 1)
Quarter: 2022Q1

REPORT INFORMATION
  Report Type: Spontaneous
  Country: US (occurrence: None)
  Receive Date: 20220218
  Receipt Date: 20220218
  Transmission Date: 20220424
  Serious: Yes (Other)
  Sender: FDA-Public Use
  Company Number: None

PATIENT
  Age: 69 Year
  Sex: Female
  Weight: 68.4 kg

DRUGS (1)
  1. DULOXETINE [Suspect]
     Active Substance: DULOXETINE
     Indication: Bipolar disorder
     Dosage: 30MG 3 TIMES A DAY ORAL?
     Route: 048
     Dates: start: 20211005, end: 20211102

REACTIONS (2)
  - Influenza like illness [None]
  - Crying [None]

NARRATIVE: CASE EVENT DATE: 20211102
